FAERS Safety Report 8190438-1 (Version None)
Quarter: 2012Q1

REPORT INFORMATION
  Report Type: 
  Country: None (occurrence: None)
  Receive Date: 20120307
  Receipt Date: 20120306
  Transmission Date: 20120608
  Serious: Yes (Other)
  Sender: FDA-Public Use
  Company Number: US-PFIZER INC-2012060228

PATIENT
  Sex: Male
  Weight: 81.179 kg

DRUGS (1)
  1. ZOLOFT [Suspect]
     Dosage: 20 MG, DAILY
     Route: 048
     Dates: start: 20111101, end: 20111101

REACTIONS (6)
  - PAIN IN EXTREMITY [None]
  - DREAMY STATE [None]
  - SOMNAMBULISM [None]
  - DISTURBANCE IN ATTENTION [None]
  - WEIGHT INCREASED [None]
  - PAIN [None]
